FAERS Safety Report 20703496 (Version 1)
Quarter: 2022Q2

REPORT INFORMATION
  Report Type: Other
  Country: CA (occurrence: CA)
  Receive Date: 20220413
  Receipt Date: 20220413
  Transmission Date: 20220721
  Serious: Yes (Other)
  Sender: FDA-Public Use
  Company Number: CA-APOTEX-2022AP005997

PATIENT
  Sex: Female

DRUGS (5)
  1. ACETAMINOPHEN [Suspect]
     Active Substance: ACETAMINOPHEN
     Indication: Back pain
     Dosage: UNK
     Route: 065
  2. OXYCODONE [Suspect]
     Active Substance: OXYCODONE
     Indication: Back pain
     Dosage: 5 MILLIGRAM
     Route: 048
  3. ACETAMINOPHEN\CODEINE PHOSPHATE [Suspect]
     Active Substance: ACETAMINOPHEN\CODEINE PHOSPHATE
     Indication: Back pain
     Dosage: UNK
     Route: 065
  4. HEROIN [Suspect]
     Active Substance: DIAMORPHINE
     Indication: Back pain
     Dosage: UNK
     Route: 065
  5. OXYCONTIN [Suspect]
     Active Substance: OXYCODONE HYDROCHLORIDE
     Indication: Back pain
     Dosage: 80 MILLIGRAM
     Route: 048

REACTIONS (8)
  - Drug dependence [Unknown]
  - Drug abuse [Unknown]
  - Overdose [Unknown]
  - Drug withdrawal syndrome [Unknown]
  - Emotional distress [Unknown]
  - Pain [Unknown]
  - Somnolence [Unknown]
  - Weight increased [Unknown]
